FAERS Safety Report 13225310 (Version 1)
Quarter: 2017Q1

REPORT INFORMATION
  Report Type: Report from Study
  Country: None (occurrence: DE)
  Receive Date: 20170213
  Receipt Date: 20170213
  Transmission Date: 20170428
  Serious: Yes (Hospitalization)
  Sender: FDA-Public Use
  Company Number: DE-ABBVIE-16P-062-1817735-00

PATIENT
  Age: 26 Year
  Sex: Female
  Weight: 85 kg

DRUGS (1)
  1. HUMIRA [Suspect]
     Active Substance: ADALIMUMAB
     Indication: SPONDYLITIS
     Route: 058
     Dates: start: 20130607, end: 20151226

REACTIONS (6)
  - Arthralgia [Unknown]
  - Fall [Unknown]
  - Arthropathy [Unknown]
  - Ankle fracture [Recovered/Resolved]
  - Obesity [Unknown]
  - Joint swelling [Unknown]

NARRATIVE: CASE EVENT DATE: 20160101
